FAERS Safety Report 9037210 (Version 1)
Quarter: 2013Q1

REPORT INFORMATION
  Report Type: Report from Study
  Country: US (occurrence: US)
  Receive Date: 20130129
  Receipt Date: 20130129
  Transmission Date: 20140127
  Serious: Yes (Hospitalization)
  Sender: FDA-Public Use
  Company Number: US-ABBOTT-12P-163-0896783-00

PATIENT
  Age: 62 Year
  Sex: Female
  Weight: 88.53 kg

DRUGS (14)
  1. HUMIRA 40 MG/ 0.8 ML PRE-FILLED SYRINGE [Suspect]
     Indication: PSORIATIC ARTHROPATHY
     Dates: start: 2008
  2. HUMIRA 40 MG/ 0.8 ML PRE-FILLED SYRINGE [Suspect]
     Dates: start: 20090728, end: 201109
  3. LISINOPRIL [Suspect]
     Indication: HYPERTENSION
     Dates: start: 2009, end: 20110905
  4. MELOXICAM [Suspect]
     Indication: RHEUMATOID ARTHRITIS
     Dates: start: 200709, end: 20110905
  5. METHOTREXATE [Concomitant]
     Indication: PRODUCT USED FOR UNKNOWN INDICATION
  6. SERTRALINE [Concomitant]
     Indication: DEPRESSION
  7. SERTRALINE [Concomitant]
     Indication: ANXIETY
  8. FOLIC ACID [Concomitant]
     Indication: PRODUCT USED FOR UNKNOWN INDICATION
  9. PREDNISONE [Concomitant]
     Indication: PRODUCT USED FOR UNKNOWN INDICATION
  10. TRAMADOL [Concomitant]
     Indication: PAIN
     Dosage: AS NEEDED
  11. CARISOPRODOL [Concomitant]
     Indication: INSOMNIA
  12. GABAPENTIN [Concomitant]
     Indication: INSOMNIA
  13. PANTOPRAZOLE [Concomitant]
     Indication: GASTROOESOPHAGEAL REFLUX DISEASE
  14. ACIDOPHIL BETAMETHASONE [Concomitant]
     Indication: ECZEMA

REACTIONS (3)
  - Pancreatitis [Recovered/Resolved]
  - Nausea [Recovered/Resolved]
  - Abdominal pain [Recovered/Resolved]
